FAERS Safety Report 6975400-6 (Version None)
Quarter: 2010Q3

REPORT INFORMATION
  Report Type: 
  Country: None (occurrence: None)
  Receive Date: 20100910
  Receipt Date: 20090313
  Transmission Date: 20110219
  Serious: No
  Sender: FDA-Public Use
  Company Number: US-WYE-H08589709

PATIENT
  Sex: Female
  Weight: 68.1 kg

DRUGS (7)
  1. PRISTIQ [Suspect]
     Indication: DEPRESSION
     Route: 048
     Dates: start: 20090301
  2. DARVOCET-N 100 [Concomitant]
  3. AMBIEN [Concomitant]
  4. ATIVAN [Concomitant]
  5. VALIUM [Concomitant]
  6. PROTONIX [Concomitant]
     Dosage: 40 MG, FREQUENCY UNSPECIFIED
     Dates: start: 20080401
  7. LEVOTHYROXINE SODIUM [Concomitant]

REACTIONS (1)
  - DIARRHOEA [None]
